FAERS Safety Report 15484137 (Version 2)
Quarter: 2018Q4

REPORT INFORMATION
  Report Type: Other
  Country: CA (occurrence: CA)
  Receive Date: 20181010
  Receipt Date: 20181206
  Transmission Date: 20190205
  Serious: Yes (Hospitalization)
  Sender: FDA-Public Use
  Company Number: CA-CIPHER-2018-CA-001484

PATIENT
  Age: 46 Year
  Sex: Female

DRUGS (2)
  1. TRAMADOL HYDROCHLORIDE. [Suspect]
     Active Substance: TRAMADOL HYDROCHLORIDE
     Indication: PAIN
  2. RAMIPRIL. [Concomitant]
     Active Substance: RAMIPRIL
     Indication: PRODUCT USED FOR UNKNOWN INDICATION
     Route: 065

REACTIONS (11)
  - Lower respiratory tract infection [Recovered/Resolved]
  - Abdominal pain [None]
  - Malaise [None]
  - Cystitis [None]
  - Urinary tract infection [None]
  - Wheezing [None]
  - Hepatic enzyme increased [None]
  - Upper respiratory tract infection [Recovered/Resolved]
  - Adverse event [None]
  - Pancreatic cyst [None]
  - Productive cough [None]
